FAERS Safety Report 11798847 (Version 1)
Quarter: 2015Q4

REPORT INFORMATION
  Report Type: Spontaneous
  Country: US (occurrence: US)
  Receive Date: 20151203
  Receipt Date: 20151203
  Transmission Date: 20160305
  Serious: No
  Sender: FDA-Public Use
  Company Number: US-BAYER-2015-481160

PATIENT
  Age: 53 Year
  Sex: Male
  Weight: 104.31 kg

DRUGS (1)
  1. MIRALAX [Suspect]
     Active Substance: POLYETHYLENE GLYCOL 3350
     Indication: COLONOSCOPY
     Dosage: 14 DF, ONCE, MIX IT WITH 64OZS OF GATORADE BETWEEN 3:00PM-12:00AM
     Route: 048
     Dates: start: 20151120, end: 20151120

REACTIONS (2)
  - Intercepted drug prescribing error [None]
  - Product use issue [None]

NARRATIVE: CASE EVENT DATE: 20151120
